FAERS Safety Report 10383832 (Version 1)
Quarter: 2014Q3

REPORT INFORMATION
  Report Type: Spontaneous
  Country: US (occurrence: None)
  Receive Date: 20140813
  Receipt Date: 20140813
  Transmission Date: 20150326
  Serious: No
  Sender: FDA-Public Use
  Company Number: None

PATIENT
  Age: 38 Year
  Sex: Female
  Weight: 70.31 kg

DRUGS (1)
  1. MULTIHANCE [Suspect]
     Active Substance: GADOBENATE DIMEGLUMINE
     Dosage: 0.2 ML/KG, 8 EXAMS
     Route: 042

REACTIONS (3)
  - Drug effect variable [None]
  - Nuclear magnetic resonance imaging abnormal [None]
  - Contrast media reaction [None]

NARRATIVE: CASE EVENT DATE: 20140812
